FAERS Safety Report 4682272-1 (Version None)
Quarter: 2005Q2

REPORT INFORMATION
  Report Type: 
  Country: None (occurrence: None)
  Receive Date: 20050602
  Receipt Date: 20050602
  Transmission Date: 20051028
  Serious: Yes (Hospitalization)
  Sender: FDA-Public Use
  Company Number: None

PATIENT
  Age: 71 Year
  Sex: Male
  Weight: 122.4712 kg

DRUGS (3)
  1. CISPLATIN [Suspect]
  2. FLUOROURACIL [Suspect]
  3. RADIATION [Suspect]

REACTIONS (7)
  - ANASTOMOTIC COMPLICATION [None]
  - FISTULA [None]
  - MIGRATION OF IMPLANT [None]
  - OESOPHAGEAL STENT INSERTION [None]
  - PLEURAL EFFUSION [None]
  - POST PROCEDURAL COMPLICATION [None]
  - PYREXIA [None]
